FAERS Safety Report 16294367 (Version 1)
Quarter: 2019Q2

REPORT INFORMATION
  Report Type: Spontaneous
  Country: US (occurrence: US)
  Receive Date: 20190509
  Receipt Date: 20190509
  Transmission Date: 20190711
  Serious: Yes (Other)
  Sender: FDA-Public Use
  Company Number: US-ROCHE-2178781

PATIENT
  Age: 81 Year
  Sex: Female

DRUGS (1)
  1. ESBRIET [Suspect]
     Active Substance: PIRFENIDONE
     Indication: IDIOPATHIC PULMONARY FIBROSIS
     Dosage: WITH MEAL; STOPPED TREATMENT
     Route: 048
     Dates: start: 20180810

REACTIONS (3)
  - Nausea [Unknown]
  - Headache [Unknown]
  - Pruritus [Unknown]

NARRATIVE: CASE EVENT DATE: 20180829
